FAERS Safety Report 20748743 (Version 5)
Quarter: 2022Q3

REPORT INFORMATION
  Report Type: Spontaneous
  Country: JP (occurrence: JP)
  Receive Date: 20220426
  Receipt Date: 20220912
  Transmission Date: 20221027
  Serious: Yes (Life-Threatening, Other)
  Sender: FDA-Public Use
  Company Number: JP-MSD-M2022-16653

PATIENT
  Age: 1 Year
  Sex: Female
  Weight: 9.8 kg

DRUGS (7)
  1. BRIDION [Suspect]
     Active Substance: SUGAMMADEX
     Indication: Neuromuscular blockade reversal
     Dosage: 20 MILLIGRAM
     Route: 041
     Dates: start: 20220118, end: 20220118
  2. BRIDION [Suspect]
     Active Substance: SUGAMMADEX
     Dosage: 50 MILLIGRAM
     Route: 041
     Dates: start: 20220118, end: 20220118
  3. ROCURONIUM BROMIDE [Suspect]
     Active Substance: ROCURONIUM BROMIDE
     Indication: Neuromuscular blocking therapy
     Dosage: 10 MILLIGRAM
     Route: 041
     Dates: start: 20220118, end: 20220118
  4. ROCURONIUM BROMIDE [Suspect]
     Active Substance: ROCURONIUM BROMIDE
     Dosage: 5 MILLIGRAM
     Route: 041
     Dates: start: 20220118, end: 20220118
  5. FENTANYL CITRATE [Concomitant]
     Active Substance: FENTANYL CITRATE
     Dosage: 20 MICROGRAM
     Route: 065
     Dates: start: 20220118, end: 20220118
  6. FENTANYL CITRATE [Concomitant]
     Active Substance: FENTANYL CITRATE
     Dosage: 10 MICROGRAM
     Route: 065
     Dates: start: 20220118, end: 20220118
  7. SEVOFLURANE [Concomitant]
     Active Substance: SEVOFLURANE
     Indication: Induction of anaesthesia
     Dosage: UNK
     Route: 065

REACTIONS (5)
  - Recurrence of neuromuscular blockade [Unknown]
  - Respiratory arrest [Recovered/Resolved]
  - Instillation site swelling [Unknown]
  - Infusion site extravasation [Unknown]
  - Off label use [Unknown]

NARRATIVE: CASE EVENT DATE: 20220118
